FAERS Safety Report 5723418-3 (Version None)
Quarter: 2008Q2

REPORT INFORMATION
  Report Type: 
  Country: None (occurrence: None)
  Receive Date: 20080425
  Receipt Date: 20080410
  Transmission Date: 20081010
  Serious: Yes (Hospitalization)
  Sender: FDA-Public Use
  Company Number: 2008S1005974

PATIENT
  Age: 7 Year
  Sex: Female

DRUGS (8)
  1. ISOTRETINOIN [Suspect]
     Indication: NEUROBLASTOMA
     Dosage: 120 MG; ORAL; TWICE A DAY, 10 MG; ORAL; TWICE A DAY
     Route: 048
  2. VINCRISTINE [Concomitant]
  3. CYCLOPHOSPHAMIDE [Concomitant]
  4. DOXORUBICIN HCL [Concomitant]
  5. CISPLATIN [Concomitant]
  6. ETOPOSIDE [Concomitant]
  7. MELPHALAN (MELPHALAN) [Concomitant]
  8. NIFEDIPINE [Concomitant]

REACTIONS (11)
  - ABDOMINAL DISCOMFORT [None]
  - ARTHRALGIA [None]
  - BLOOD ALKALINE PHOSPHATASE INCREASED [None]
  - BLOOD TRIGLYCERIDES INCREASED [None]
  - CONVULSION [None]
  - HYPERCALCAEMIA [None]
  - HYPERTENSION [None]
  - RASH [None]
  - RENAL FAILURE [None]
  - SKIN EXFOLIATION [None]
  - VOMITING [None]
